FAERS Safety Report 16067500 (Version 1)
Quarter: 2019Q1

REPORT INFORMATION
  Report Type: Report from Study
  Country: None (occurrence: IT)
  Receive Date: 20190313
  Receipt Date: 20190313
  Transmission Date: 20190418
  Serious: Yes (Hospitalization, Other)
  Sender: FDA-Public Use
  Company Number: IT-ABBVIE-19S-083-2699560-00

PATIENT
  Age: 58 Year
  Sex: Male

DRUGS (1)
  1. DUODOPA [Suspect]
     Active Substance: CARBIDOPA\LEVODOPA
     Indication: PARKINSON^S DISEASE
     Dosage: MD: 5+3 CR: 2,7 ED: 4
     Route: 050
     Dates: start: 20150318

REACTIONS (2)
  - Cerebral ischaemia [Unknown]
  - Speech disorder [Unknown]

NARRATIVE: CASE EVENT DATE: 201901
